FAERS Safety Report 8197865-7 (Version None)
Quarter: 2012Q1

REPORT INFORMATION
  Report Type: 
  Country: None (occurrence: None)
  Receive Date: 20120309
  Receipt Date: 20120305
  Transmission Date: 20120608
  Serious: Yes (Other)
  Sender: FDA-Public Use
  Company Number: US-JNJFOC-20100804989

PATIENT
  Sex: Female

DRUGS (3)
  1. LEVAQUIN [Suspect]
     Indication: URINARY TRACT INFECTION
     Route: 048
     Dates: start: 20011101, end: 20011114
  2. LEVAQUIN [Suspect]
     Route: 048
     Dates: start: 20011122, end: 20011208
  3. LEVAQUIN [Suspect]
     Indication: PRODUCT USED FOR UNKNOWN INDICATION

REACTIONS (6)
  - TENOSYNOVITIS STENOSANS [None]
  - EPICONDYLITIS [None]
  - CARPAL TUNNEL SYNDROME [None]
  - DEPRESSION [None]
  - TENDON RUPTURE [None]
  - TENDONITIS [None]
